FAERS Safety Report 16206465 (Version 3)
Quarter: 2020Q2

REPORT INFORMATION
  Report Type: Report from Study
  Country: AU (occurrence: AU)
  Receive Date: 20190417
  Receipt Date: 20200609
  Transmission Date: 20200713
  Serious: Yes (Hospitalization, Other)
  Sender: FDA-Public Use
  Company Number: AU-TOLMAR, INC.-2019AU003768

PATIENT

DRUGS (1)
  1. ELIGARD [Suspect]
     Active Substance: LEUPROLIDE ACETATE
     Indication: PROSTATE CANCER
     Dosage: 22.5 MG, Q3MONTHS
     Route: 058

REACTIONS (7)
  - Abdominal symptom [Not Recovered/Not Resolved]
  - Near death experience [Unknown]
  - Gastric cancer [Unknown]
  - Buttock injury [Unknown]
  - Fall [Unknown]
  - Skin ulcer [Recovering/Resolving]
  - Skin laceration [Recovering/Resolving]
